FAERS Safety Report 12238429 (Version 1)
Quarter: 2016Q2

REPORT INFORMATION
  Report Type: Spontaneous
  Country: US (occurrence: US)
  Receive Date: 20160405
  Receipt Date: 20160405
  Transmission Date: 20160815
  Serious: Yes (Death, Hospitalization)
  Sender: FDA-Public Use
  Company Number: US-FRESENIUS KABI-FK201601667

PATIENT
  Sex: Female

DRUGS (1)
  1. TRANEXAMIC ACID (MANUFACTURER UNKNOWN) [Suspect]
     Active Substance: TRANEXAMIC ACID
     Indication: SPINAL ANAESTHESIA
     Route: 037

REACTIONS (12)
  - Cardio-respiratory arrest [Fatal]
  - Muscle spasms [Unknown]
  - Ventricular tachycardia [Unknown]
  - Complication associated with device [Unknown]
  - Wrong drug administered [Unknown]
  - Product use issue [Unknown]
  - Medication error [Unknown]
  - Status epilepticus [Recovered/Resolved]
  - Agitation [Unknown]
  - Back pain [Unknown]
  - Tetany [Unknown]
  - Haemodynamic instability [Unknown]
